FAERS Safety Report 12298937 (Version 2)
Quarter: 2016Q2

REPORT INFORMATION
  Report Type: Report from Study
  Country: IN (occurrence: IN)
  Receive Date: 20160425
  Receipt Date: 20160504
  Transmission Date: 20160815
  Serious: Yes (Hospitalization)
  Sender: FDA-Public Use
  Company Number: IN-ROCHE-1738279

PATIENT
  Age: 45 Year
  Sex: Male
  Weight: 77.8 kg

DRUGS (30)
  1. EMESET [Concomitant]
     Active Substance: ONDANSETRON HYDROCHLORIDE
     Indication: NAUSEA
     Dosage: SOS
     Route: 048
     Dates: start: 20160303
  2. RITUXIMAB [Suspect]
     Active Substance: RITUXIMAB
     Dosage: VISIT 4
     Route: 042
     Dates: start: 20160402, end: 20160402
  3. SHELCAL [Concomitant]
     Route: 065
     Dates: start: 20160303
  4. LASIX [Concomitant]
     Active Substance: FUROSEMIDE
     Dosage: 1/2-1/2
     Route: 048
     Dates: start: 20160303, end: 20160317
  5. FEFOL Z [Concomitant]
     Route: 048
     Dates: start: 20160419
  6. RITUXIMAB [Suspect]
     Active Substance: RITUXIMAB
     Indication: GRANULOMATOSIS WITH POLYANGIITIS
     Dosage: DATE OF LAST DOSE PRIOR TO SAE: 02/APR/2016
     Route: 042
     Dates: start: 20160310, end: 20160310
  7. WYSOLONE [Concomitant]
     Active Substance: PREDNISOLONE
     Indication: VASCULITIS
     Route: 048
     Dates: start: 20160303, end: 20160317
  8. WYSOLONE [Concomitant]
     Active Substance: PREDNISOLONE
     Route: 048
     Dates: start: 20160317, end: 20160328
  9. METOPROLOL. [Concomitant]
     Active Substance: METOPROLOL
     Route: 065
     Dates: start: 20160303
  10. SHELCAL [Concomitant]
     Indication: HYPOCALCAEMIA
     Route: 048
     Dates: start: 20160303, end: 20160328
  11. RESTYL [Concomitant]
     Route: 048
     Dates: start: 20160419
  12. AZORAN (INDIA) [Concomitant]
     Route: 048
     Dates: start: 20160303, end: 20160317
  13. RITUXIMAB [Suspect]
     Active Substance: RITUXIMAB
     Dosage: VISIT 3
     Route: 042
     Dates: start: 20160325, end: 20160325
  14. MINIPRESS XL [Concomitant]
     Active Substance: PRAZOSIN HYDROCHLORIDE
     Route: 065
     Dates: start: 20160419
  15. SEVCAR [Concomitant]
     Indication: HYPERPHOSPHATAEMIA
     Route: 048
     Dates: start: 20160303
  16. NICARDIA [Concomitant]
     Dosage: 1-0-1
     Route: 065
     Dates: start: 20160328
  17. ELTROXIN [Concomitant]
     Active Substance: LEVOTHYROXINE
     Route: 048
     Dates: start: 20160303
  18. RITUXIMAB [Suspect]
     Active Substance: RITUXIMAB
     Dosage: VISIT 2
     Route: 042
     Dates: start: 20160317, end: 20160317
  19. WYSOLONE [Concomitant]
     Active Substance: PREDNISOLONE
     Route: 048
     Dates: start: 20160328
  20. NICARDIA [Concomitant]
     Indication: HYPERTENSION
     Route: 048
     Dates: start: 20160303, end: 20160328
  21. FEBURIC [Concomitant]
     Active Substance: FEBUXOSTAT
     Route: 048
     Dates: start: 20160303, end: 20160317
  22. FEBURIC [Concomitant]
     Active Substance: FEBUXOSTAT
     Dosage: ALTERNATE DAYS
     Route: 048
     Dates: start: 20160317
  23. AUGMENTIN DUO [Concomitant]
     Active Substance: AMOXICILLIN\CLAVULANATE POTASSIUM
     Route: 065
     Dates: start: 20160419, end: 20160423
  24. FOLVITE [Concomitant]
     Active Substance: FOLIC ACID
     Route: 048
     Dates: start: 20160419
  25. METHYLPREDNISOLONE. [Suspect]
     Active Substance: METHYLPREDNISOLONE
     Indication: GRANULOMATOSIS WITH POLYANGIITIS
     Route: 042
     Dates: start: 20160302
  26. METHYLPREDNISOLONE. [Suspect]
     Active Substance: METHYLPREDNISOLONE
     Route: 042
     Dates: start: 20160310
  27. PAN-D [Concomitant]
     Indication: DYSPEPSIA
     Route: 048
     Dates: start: 20160303
  28. MINIPRESS XL [Concomitant]
     Active Substance: PRAZOSIN HYDROCHLORIDE
     Indication: HYPERTENSION
     Route: 048
     Dates: start: 20160303, end: 20160328
  29. AUGMENTIN DUO [Concomitant]
     Active Substance: AMOXICILLIN\CLAVULANATE POTASSIUM
     Dosage: 1-0-1
     Route: 048
     Dates: start: 20160328, end: 20160401
  30. LASIX [Concomitant]
     Active Substance: FUROSEMIDE
     Dosage: 1-0-1/2
     Route: 048
     Dates: start: 20160317, end: 20160328

REACTIONS (4)
  - Pulmonary oedema [Recovered/Resolved]
  - Acute kidney injury [Recovering/Resolving]
  - Granulomatosis with polyangiitis [Recovering/Resolving]
  - Blood creatinine increased [Recovering/Resolving]

NARRATIVE: CASE EVENT DATE: 20160325
